FAERS Safety Report 7947120-2 (Version None)
Quarter: 2011Q4

REPORT INFORMATION
  Report Type: 
  Country: None (occurrence: None)
  Receive Date: 20111129
  Receipt Date: 20111122
  Transmission Date: 20120403
  Serious: Yes (Other)
  Sender: FDA-Public Use
  Company Number: US-ROCHE-786632

PATIENT
  Sex: Male
  Weight: 78.088 kg

DRUGS (1)
  1. ACCUTANE [Suspect]
     Indication: ACNE
     Route: 065
     Dates: start: 19980201, end: 19981101

REACTIONS (5)
  - AGGRESSION [None]
  - MOOD ALTERED [None]
  - PERSONALITY CHANGE [None]
  - INTESTINAL HAEMORRHAGE [None]
  - COLITIS ULCERATIVE [None]
